FAERS Safety Report 18176499 (Version 2)
Quarter: 2020Q3

REPORT INFORMATION
  Report Type: Report from Study
  Country: US (occurrence: US)
  Receive Date: 20200820
  Receipt Date: 20200908
  Transmission Date: 20201103
  Serious: Yes (Hospitalization)
  Sender: FDA-Public Use
  Company Number: US-PFIZER INC-2020279661

PATIENT
  Age: 89 Year
  Sex: Female
  Weight: 68.03 kg

DRUGS (25)
  1. BIOTIN [Concomitant]
     Active Substance: BIOTIN
     Dosage: UNK
     Route: 048
  2. LASIX [Concomitant]
     Active Substance: FUROSEMIDE
     Dosage: 1 TABLET (40 MG TOTAL) DAILY
     Route: 048
  3. MYCOSTATIN [Concomitant]
     Active Substance: NYSTATIN
     Dosage: POWDER, 2X/DAY FOR 180 DAYS
     Route: 061
  4. PHENERGAN [Concomitant]
     Active Substance: PROMETHAZINE HYDROCHLORIDE
     Indication: NAUSEA
     Dosage: 25 MG, EVERY 6 (SIX) HOURS AS NEEDED
     Route: 048
  5. BENTYL [Concomitant]
     Active Substance: DICYCLOMINE HYDROCHLORIDE
     Indication: ABDOMINAL PAIN UPPER
     Dosage: ONE CAPSULE THREE TIMES DAILY AS NEEDED
     Route: 048
  6. BENTYL [Concomitant]
     Active Substance: DICYCLOMINE HYDROCHLORIDE
     Dosage: 10 MG, 3X/DAY (10MG TOTAL FOR 30 DAYS)
  7. FASLODEX [Concomitant]
     Active Substance: FULVESTRANT
     Dosage: 500 MG, CHEMO INJECTION
  8. CALTRATE WITH VITAMIN D [Concomitant]
     Active Substance: CALCIUM CARBONATE\CHOLECALCIFEROL
     Dosage: 1 TABLET, DAILY, 600 MG  (1,500 MG)?800 UNIT CHEW
     Route: 048
  9. FLONASE [Concomitant]
     Active Substance: FLUTICASONE PROPIONATE
     Dosage: 1 SPRAY INTO EACH NOSTRIL DAILY.
  10. IMODIUM [Concomitant]
     Active Substance: LOPERAMIDE HYDROCHLORIDE
     Indication: DIARRHOEA
     Dosage: 1 CAPSULE (2 MG TOTAL) 4 (FOUR) TIMES A DAY AS NEEDED FOR UP TO 10 DAYS
     Route: 048
  11. ASPIRIN [ACETYLSALICYLIC ACID] [Concomitant]
     Active Substance: ASPIRIN
     Dosage: 81 MG, EC
     Route: 048
  12. XGEVA [Concomitant]
     Active Substance: DENOSUMAB
     Dosage: 120 MG
  13. ASPRIN [Concomitant]
     Active Substance: ASPIRIN
     Dosage: 81 MG, DAILY
     Route: 048
  14. CENTRUM SILVER WOMEN 50+ [Concomitant]
     Active Substance: MINERALS\VITAMINS
     Dosage: 1 TABLET, DAILY
     Route: 048
  15. ZOFRAN [Concomitant]
     Active Substance: ONDANSETRON HYDROCHLORIDE
     Indication: NAUSEA
     Dosage: 1 TABLET (8 MG TOTAL) EVERY 8 (EIGHT) HOURS AS NEEDED
     Route: 048
  16. SIMPLE SYRUP [Concomitant]
     Dosage: 5 ML, EVERY 6 HOURS FOR 2 DAYS
     Route: 048
  17. CYCLOBENZAPRINE. [Concomitant]
     Active Substance: CYCLOBENZAPRINE
     Indication: MUSCLE SPASMS
     Dosage: 1 TABLET (5 MG TOTAL), 2X/DAY AS NEEDED FOR MUSCLE SPASMS FOR UP TO 10 DAYS
     Route: 048
  18. VOLTAREN FORTE [DICLOFENAC SODIUM] [Concomitant]
     Dosage: 1 G, 3X/DAY
     Route: 061
  19. TRAMADOL. [Concomitant]
     Active Substance: TRAMADOL
     Dosage: 100 MG, NIGHTLY FOR 30 DAYS
     Route: 048
  20. IBRANCE [Suspect]
     Active Substance: PALBOCICLIB
     Indication: BREAST CANCER STAGE IV
     Dosage: 100 MG, DAILY
     Route: 048
     Dates: end: 20200715
  21. SYNTHROID [Concomitant]
     Active Substance: LEVOTHYROXINE SODIUM
     Dosage: 1 TABLET (150 MCG TOTAL) DAILY
     Route: 048
  22. PRILOSEC [Concomitant]
     Active Substance: OMEPRAZOLE MAGNESIUM
     Dosage: 1 CAPSULE (40 MG TOTAL) DAILY FOR 90 DAYS
     Route: 048
  23. ZOFRAN [Concomitant]
     Active Substance: ONDANSETRON HYDROCHLORIDE
     Indication: VOMITING
  24. PHENERGAN [Concomitant]
     Active Substance: PROMETHAZINE HYDROCHLORIDE
     Indication: VOMITING
  25. CARDIZEM CD [Concomitant]
     Active Substance: DILTIAZEM HYDROCHLORIDE
     Dosage: 120 MG, 1X/DAY (30 DAYS)
     Route: 048

REACTIONS (4)
  - Dysphagia [Recovering/Resolving]
  - Muscular weakness [Recovered/Resolved]
  - Neutrophil count decreased [Recovered/Resolved]
  - White blood cell count decreased [Recovering/Resolving]

NARRATIVE: CASE EVENT DATE: 20200714
